FAERS Safety Report 10477663 (Version 1)
Quarter: 2014Q3

REPORT INFORMATION
  Report Type: Spontaneous
  Country: US (occurrence: None)
  Receive Date: 20140925
  Receipt Date: 20140925
  Transmission Date: 20150326
  Serious: Yes (Hospitalization)
  Sender: FDA-Public Use
  Company Number: None

PATIENT
  Age: 71 Year
  Sex: Male
  Weight: 103.7 kg

DRUGS (1)
  1. BEVACIZUMAB (RHUMAB VEGF) (704865) [Suspect]
     Active Substance: BEVACIZUMAB
     Dates: end: 20140826

REACTIONS (5)
  - Coronary artery disease [None]
  - Renal failure acute [None]
  - Ischaemia [None]
  - Coronary artery occlusion [None]
  - Cardiac failure congestive [None]

NARRATIVE: CASE EVENT DATE: 20140905
